FAERS Safety Report 7340476-3 (Version None)
Quarter: 2011Q1

REPORT INFORMATION
  Report Type: 
  Country: None (occurrence: None)
  Receive Date: 20110309
  Receipt Date: 20110225
  Transmission Date: 20110831
  Serious: Yes (Death, Life-Threatening, Hospitalization, Disabling)
  Sender: FDA-Public Use
  Company Number: ES-CELGENEUS-144-21880-10061766

PATIENT
  Sex: Female
  Weight: 57 kg

DRUGS (24)
  1. BORTEZOMIB [Suspect]
     Dosage: 2 MILLIGRAM
     Route: 051
     Dates: start: 20100608
  2. REVLIMID [Suspect]
     Dosage: 5 MILLIGRAM
     Route: 048
     Dates: start: 20091112
  3. DEXAMETHASONE [Suspect]
     Dosage: 20 MILLIGRAM/SQ. METER
     Route: 065
     Dates: start: 20100629
  4. DEXAMETHASONE [Suspect]
     Dosage: 40 MILLIGRAM
     Route: 048
     Dates: start: 20091112
  5. LEVOTHYROXINE [Concomitant]
     Indication: HYPOTHYROIDISM
     Dosage: 75 MILLIGRAM
     Route: 048
  6. PRIMPERAN TAB [Concomitant]
     Indication: NAUSEA
     Dosage: 20 MILLIGRAM
     Route: 051
     Dates: start: 20100620, end: 20100701
  7. DEXAMETHASONE [Suspect]
     Indication: MULTIPLE MYELOMA
     Dosage: 40 MILLIGRAM
     Route: 048
     Dates: start: 20100521, end: 20100608
  8. BORTEZOMIB [Suspect]
     Dosage: 2 MILLIGRAM
     Route: 051
     Dates: start: 20100629
  9. ACYCLOVIR [Concomitant]
     Indication: PROPHYLAXIS
     Dosage: 800 MILLIGRAM
     Route: 048
     Dates: start: 20091112, end: 20100531
  10. FORTECORTIN [Concomitant]
     Dosage: 40 MILLIGRAM
     Route: 051
     Dates: start: 20100608, end: 20100630
  11. NEUPOGEN [Concomitant]
     Indication: NEUTROPENIA
     Dosage: 300 MICROGRAM
     Dates: start: 20100616, end: 20100618
  12. EPOGEN [Concomitant]
     Dosage: 150 MILLIGRAM
     Route: 058
     Dates: end: 20100531
  13. CALCIUM D SANDOZ FORTE [Concomitant]
     Indication: HYPOCALCAEMIA
     Dosage: 1000 MILLIGRAM
     Route: 051
     Dates: start: 20100611, end: 20100615
  14. FORTASEC [Concomitant]
     Dosage: 6 MILLIGRAM
     Route: 048
     Dates: start: 20100625, end: 20100701
  15. REVLIMID [Suspect]
     Indication: MULTIPLE MYELOMA
     Dosage: 5 MILLIGRAM
     Route: 048
     Dates: start: 20100521, end: 20100608
  16. ADOLONTA [Concomitant]
     Dosage: 100 MILLIGRAM
     Route: 051
     Dates: start: 20100604, end: 20100630
  17. SEGURIL [Concomitant]
     Indication: PLEURAL DISORDER
     Dosage: 40 MILLIGRAM
     Route: 051
     Dates: start: 20100609, end: 20100701
  18. CIPROFLOXACIN [Concomitant]
     Dosage: 800 MILLIGRAM
     Route: 051
     Dates: start: 20100604, end: 20100614
  19. ALLOPURINOL [Concomitant]
     Dosage: 300 MILLIGRAM
     Route: 048
     Dates: start: 20100608, end: 20100630
  20. PLASMA [Concomitant]
     Indication: COAGULOPATHY
     Dosage: 4 IU (INTERNATIONAL UNIT)
     Route: 051
     Dates: start: 20100615, end: 20100701
  21. CALCIUM GLUCONATE [Concomitant]
     Indication: HYPOCALCAEMIA
     Dosage: 4 DOSAGE FORMS
     Route: 051
     Dates: start: 20100616, end: 20100618
  22. CAPOTEN [Concomitant]
     Indication: ACUTE PULMONARY OEDEMA
     Dosage: 25 MILLIGRAM
     Route: 048
     Dates: start: 20100630, end: 20100701
  23. ADIRO [Concomitant]
     Indication: PROPHYLAXIS
     Dosage: 100 MILLIGRAM
     Route: 048
     Dates: start: 20091112, end: 20100601
  24. MERONEM [Concomitant]
     Indication: FEBRILE NEUTROPENIA
     Dosage: 3 GRAM
     Route: 051
     Dates: start: 20100618, end: 20100701

REACTIONS (8)
  - ANAEMIA [None]
  - DIARRHOEA [None]
  - ACUTE RESPIRATORY DISTRESS SYNDROME [None]
  - HYPERTENSIVE CRISIS [None]
  - ACUTE PULMONARY OEDEMA [None]
  - NEUTROPENIA [None]
  - LEUKAEMIA PLASMACYTIC [None]
  - THROMBOCYTOPENIA [None]
